FAERS Safety Report 7497977-7 (Version None)
Quarter: 2011Q2

REPORT INFORMATION
  Report Type: 
  Country: None (occurrence: None)
  Receive Date: 20110524
  Receipt Date: 20110512
  Transmission Date: 20111010
  Serious: No
  Sender: FDA-Public Use
  Company Number: US-BIOGENIDEC-2011BI003799

PATIENT
  Sex: Male

DRUGS (3)
  1. TYSABRI [Suspect]
     Route: 042
     Dates: start: 20070215, end: 20100726
  2. TYSABRI [Suspect]
     Route: 042
     Dates: start: 20050120, end: 20050223
  3. TYSABRI [Suspect]
     Indication: MULTIPLE SCLEROSIS
     Route: 042
     Dates: start: 20110110

REACTIONS (3)
  - COGNITIVE DISORDER [None]
  - VISUAL IMPAIRMENT [None]
  - FATIGUE [None]
